FAERS Safety Report 8990467 (Version 1)
Quarter: 2012Q4

REPORT INFORMATION
  Report Type: 
  Country: DK (occurrence: DK)
  Receive Date: 20121228
  Receipt Date: 20121228
  Transmission Date: 20130627
  Serious: Yes (Other)
  Sender: FDA-Public Use
  Company Number: DK-TEVA-376693ISR

PATIENT
  Age: 53 Year
  Sex: Male

DRUGS (12)
  1. GABAPENTIN [Suspect]
     Indication: EPILEPSY
     Dosage: 5 Dosage forms Daily;
  2. GABAPENTIN [Suspect]
     Dosage: 3600 Milligram Daily;
  3. TRILEPTAL [Suspect]
     Indication: EPILEPSY
     Dosage: Udtrapning i december 2003
     Dates: end: 201209
  4. DELEPSINE RETARD [Suspect]
     Indication: EPILEPSY
     Dosage: 1000 Milligram Daily;
     Dates: start: 2003
  5. DELEPSINE RETARD [Suspect]
     Dosage: 1500 Milligram Daily;
  6. LAMICTAL [Suspect]
     Indication: EPILEPSY
     Dates: start: 20060829
  7. LAMICTAL [Suspect]
     Dosage: 25 Milligram Daily;
  8. DELEPSINE [Suspect]
     Indication: EPILEPSY
     Dates: start: 200302
  9. SIMVASTATIN [Concomitant]
  10. ATACAND [Concomitant]
     Dosage: 12 Milligram Daily;
  11. ATACAND [Concomitant]
  12. HJERTEMAGNYL [Concomitant]

REACTIONS (6)
  - Petit mal epilepsy [Not Recovered/Not Resolved]
  - Sleep apnoea syndrome [Unknown]
  - Memory impairment [Not Recovered/Not Resolved]
  - Erectile dysfunction [Not Recovered/Not Resolved]
  - Dissociation [Unknown]
  - Communication disorder [Unknown]
